FAERS Safety Report 6560764-8 (Version None)
Quarter: 2010Q1

REPORT INFORMATION
  Report Type: 
  Country: None (occurrence: None)
  Receive Date: 20100129
  Receipt Date: 20090928
  Transmission Date: 20100710
  Serious: Yes (Hospitalization)
  Sender: FDA-Public Use
  Company Number: US-ABBOTT-09P-163-0599910-00

PATIENT
  Sex: Female
  Weight: 59.02 kg

DRUGS (2)
  1. HUMIRA [Suspect]
     Indication: CROHN'S DISEASE
     Route: 058
     Dates: start: 20080312, end: 20090922
  2. HUMIRA [Suspect]

REACTIONS (5)
  - ANAEMIA [None]
  - COUGH [None]
  - FUNGAL OESOPHAGITIS [None]
  - OEDEMA PERIPHERAL [None]
  - RASH [None]
